FAERS Safety Report 12557617 (Version 1)
Quarter: 2016Q3

REPORT INFORMATION
  Report Type: Report from Study
  Country: HU (occurrence: HU)
  Receive Date: 20160714
  Receipt Date: 20160714
  Transmission Date: 20161109
  Serious: No
  Sender: FDA-Public Use
  Company Number: HU-JNJFOC-20131006295

PATIENT
  Age: 6 Decade
  Sex: Male

DRUGS (1)
  1. STELARA [Suspect]
     Active Substance: USTEKINUMAB
     Indication: PSORIASIS
     Route: 058
     Dates: start: 20130902

REACTIONS (8)
  - Productive cough [Not Recovered/Not Resolved]
  - Body temperature decreased [Unknown]
  - Oropharyngeal pain [Unknown]
  - Hepatic function abnormal [Unknown]
  - Fatigue [Unknown]
  - Thyroid cyst [Unknown]
  - Vomiting [Unknown]
  - Nasopharyngitis [Recovering/Resolving]

NARRATIVE: CASE EVENT DATE: 20131014
